FAERS Safety Report 7746587-2 (Version None)
Quarter: 2011Q3

REPORT INFORMATION
  Report Type: 
  Country: None (occurrence: None)
  Receive Date: 20110913
  Receipt Date: 20110831
  Transmission Date: 20111222
  Serious: Yes (Life-Threatening, Hospitalization)
  Sender: FDA-Public Use
  Company Number: US-BAYER-2011-009077

PATIENT
  Age: 21 Year
  Sex: Female
  Weight: 61.224 kg

DRUGS (3)
  1. AZITHROMYCIN [Concomitant]
  2. PROAIR HFA [Concomitant]
  3. DROSPIRENONE AND ETHINYL ESTRADIOL [Suspect]
     Indication: PRODUCT USED FOR UNKNOWN INDICATION
     Dosage: UNK
     Dates: start: 20080101, end: 20090801

REACTIONS (2)
  - PAIN [None]
  - PULMONARY EMBOLISM [None]
